FAERS Safety Report 4775347-X (Version None)
Quarter: 2005Q3

REPORT INFORMATION
  Report Type: 
  Country: None (occurrence: None)
  Receive Date: 20050922
  Receipt Date: 20050713
  Transmission Date: 20060218
  Serious: Yes (Hospitalization, Other)
  Sender: FDA-Public Use
  Company Number: GB-BOEHRINGER INGELHEIM PHARMACEUTICALS, INC.-2005-UK-01278UK

PATIENT
  Age: 46 Year
  Sex: Male
  Weight: 104 kg

DRUGS (8)
  1. PERSANTIN (00015/0052R) [Suspect]
     Dosage: 200 MG TWICE DAILY
     Route: 048
     Dates: start: 20050620, end: 20050704
  2. ASPIRIN [Concomitant]
     Dosage: 75 MG ONCE DAILY
     Route: 065
  3. KLARICID [Concomitant]
     Dosage: 250 MG TWICE DAILY
     Route: 065
  4. LISINOPRIL [Concomitant]
     Dosage: 20 MG ONCE DAILY
     Route: 065
  5. METFORMIN HCL [Concomitant]
     Dosage: 500 MG THREE TIMES DAILY
     Route: 065
  6. ISOSORBIDE [Concomitant]
     Dosage: 60 MG TWICE DAILY
     Route: 065
  7. PAROXETINE [Concomitant]
     Dosage: 20 MG ONCE DAILY
     Route: 065
  8. ZOTON [Concomitant]
     Dosage: 20 MG TWICE DAILY
     Route: 065

REACTIONS (4)
  - CHEST DISCOMFORT [None]
  - CIRCUMSTANCE OR INFORMATION CAPABLE OF LEADING TO MEDICATION ERROR [None]
  - DYSPNOEA [None]
  - INAPPROPRIATE SCHEDULE OF DRUG ADMINISTRATION [None]
